FAERS Safety Report 9657095 (Version 3)
Quarter: 2014Q2

REPORT INFORMATION
  Report Type: Report from Study
  Country: US (occurrence: US)
  Receive Date: 20131030
  Receipt Date: 20140515
  Transmission Date: 20141212
  Serious: Yes (Other)
  Sender: FDA-Public Use
  Company Number: US-PURDUE-USA-2013-0107918

PATIENT
  Age: 57 Year
  Sex: Male

DRUGS (5)
  1. OXYCONTIN (NDA 22-272) [Suspect]
     Indication: PAIN
     Dosage: 30 MG, Q8H
     Route: 048
     Dates: start: 20130829
  2. OXYCONTIN (NDA 22-272) [Suspect]
     Indication: OSTEOARTHRITIS
     Dosage: UNKNOWN
     Route: 048
     Dates: start: 2011
  3. OXYCONTIN (NDA 22-272) [Suspect]
     Indication: BACK PAIN
     Dosage: UNK
     Route: 048
     Dates: start: 201207
  4. OXYCONTIN (NDA 22-272) [Suspect]
     Indication: POST LAMINECTOMY SYNDROME
     Dosage: 30 MG, Q8H
     Route: 048
     Dates: start: 201403, end: 201404
  5. OXYCODONE HCL IR CAPSULES [Suspect]
     Indication: BREAKTHROUGH PAIN
     Dosage: 30 MG, UNK
     Route: 048

REACTIONS (4)
  - Neck surgery [Recovered/Resolved]
  - Surgery [Recovered/Resolved]
  - Pain [Not Recovered/Not Resolved]
  - Inadequate analgesia [Not Recovered/Not Resolved]
